FAERS Safety Report 11743916 (Version 1)
Quarter: 2015Q4

REPORT INFORMATION
  Report Type: Report from Study
  Country: US (occurrence: US)
  Receive Date: 20151116
  Receipt Date: 20151116
  Transmission Date: 20160304
  Serious: Yes (Hospitalization)
  Sender: FDA-Public Use
  Company Number: US-JNJFOC-20151116006

PATIENT
  Sex: Male

DRUGS (13)
  1. ZOCOR [Concomitant]
     Active Substance: SIMVASTATIN
  2. POTASSIUM [Concomitant]
     Active Substance: POTASSIUM
  3. OXYCONTIN [Concomitant]
     Active Substance: OXYCODONE HYDROCHLORIDE
  4. VITAMIN B [Concomitant]
     Active Substance: VITAMIN B
  5. VITAMINS NOS [Concomitant]
     Active Substance: VITAMINS
  6. ASPIRIN. [Concomitant]
     Active Substance: ASPIRIN
  7. LASIX [Concomitant]
     Active Substance: FUROSEMIDE
  8. FLOMAX [Concomitant]
     Active Substance: TAMSULOSIN HYDROCHLORIDE
  9. GLIMEPIRIDE. [Concomitant]
     Active Substance: GLIMEPIRIDE
  10. LYRICA [Concomitant]
     Active Substance: PREGABALIN
  11. VITAMIN B6 [Concomitant]
     Active Substance: PYRIDOXINE HYDROCHLORIDE
  12. IMBRUVICA [Suspect]
     Active Substance: IBRUTINIB
     Indication: PRODUCT USED FOR UNKNOWN INDICATION
     Route: 048
     Dates: start: 20151008
  13. XANAX [Concomitant]
     Active Substance: ALPRAZOLAM

REACTIONS (1)
  - Tachyarrhythmia [Unknown]

NARRATIVE: CASE EVENT DATE: 2015
